FAERS Safety Report 8326868-4 (Version None)
Quarter: 2012Q2

REPORT INFORMATION
  Report Type: 
  Country: None (occurrence: None)
  Receive Date: 20120501
  Receipt Date: 20110829
  Transmission Date: 20120825
  Serious: No
  Sender: FDA-Public Use
  Company Number: US-SANOFI-AVENTIS-2011SA057011

PATIENT
  Age: 77 Year
  Sex: Female

DRUGS (2)
  1. APIDRA [Suspect]
     Dosage: SLIDING SCALE
     Route: 058
  2. ALL OTHER THERAPEUTIC PRODUCTS [Suspect]
     Indication: BLOOD PRESSURE ABNORMAL
     Route: 065
     Dates: start: 20110801

REACTIONS (2)
  - CONFUSIONAL STATE [None]
  - DIZZINESS [None]
